FAERS Safety Report 21971012 (Version 1)
Quarter: 2023Q1

REPORT INFORMATION
  Report Type: Spontaneous
  Country: US (occurrence: US)
  Receive Date: 20230209
  Receipt Date: 20230209
  Transmission Date: 20230418
  Serious: No
  Sender: FDA-Public Use
  Company Number: US-ADVANZ PHARMA-202302000737

PATIENT

DRUGS (2)
  1. HYDROXYCHLOROQUINE [Suspect]
     Active Substance: HYDROXYCHLOROQUINE
     Indication: Product used for unknown indication
     Dosage: UNK (PLAQUENIL, MPID: 54165)
     Route: 065
  2. HUMIRA [Suspect]
     Active Substance: ADALIMUMAB
     Indication: Rheumatoid arthritis
     Dosage: UNK (SOLUTION FOR INJECTION, SINGLE DOSE PEN)
     Route: 058
     Dates: start: 20200709

REACTIONS (4)
  - Drug hypersensitivity [Recovered/Resolved]
  - Urticaria [Unknown]
  - Device issue [Unknown]
  - Therapeutic product effect incomplete [Unknown]
